FAERS Safety Report 11770603 (Version 1)
Quarter: 2015Q4

REPORT INFORMATION
  Report Type: Spontaneous
  Country: US (occurrence: None)
  Receive Date: 20151123
  Receipt Date: 20151123
  Transmission Date: 20160304
  Serious: Yes (Other)
  Sender: FDA-Public Use
  Company Number: US-MDT-ADR-2015-02219

PATIENT
  Age: 18 Year
  Sex: Male

DRUGS (2)
  1. BACLOFEN INTRATHECAL [Suspect]
     Active Substance: BACLOFEN
     Indication: MUSCLE SPASTICITY
  2. ORAL BACLOFEN [Suspect]
     Active Substance: BACLOFEN

REACTIONS (4)
  - No therapeutic response [None]
  - Drug withdrawal syndrome [None]
  - Skin warm [None]
  - Pruritus [None]
